FAERS Safety Report 5842640-9 (Version None)
Quarter: 2008Q3

REPORT INFORMATION
  Report Type: 
  Country: None (occurrence: None)
  Receive Date: 20080808
  Receipt Date: 20080723
  Transmission Date: 20090109
  Serious: Yes (Other)
  Sender: FDA-Public Use
  Company Number: DSA_31058_2007

PATIENT
  Sex: Female

DRUGS (35)
  1. CARDIZEM CD [Suspect]
     Indication: HYPERTENSION
     Dosage: (180 MG QD ORAL)
     Route: 048
     Dates: start: 19930101, end: 20080201
  2. ATENOL [Concomitant]
  3. HYDROCHLOROTHIAZIDE [Concomitant]
  4. TRAZODONE HCL [Concomitant]
  5. PAXIL [Concomitant]
  6. AMBIEN [Concomitant]
  7. LORCET-HD [Concomitant]
  8. XANAX [Concomitant]
  9. PENICILLIN VK /00001802/ [Concomitant]
  10. ACETASOL HC [Concomitant]
  11. ALUMINUM CL SOL [Concomitant]
  12. ZOVIRAX /00587301/ [Concomitant]
  13. COTRIMOXAZOLE [Concomitant]
  14. TERCONAZOLE [Concomitant]
  15. METRONIDAZOLE [Concomitant]
  16. ACETAMINOPHEN AND HYDROCODONE BITARTRATE [Concomitant]
  17. PRAVACHOL [Concomitant]
  18. PRAVASTATIN [Concomitant]
  19. LUNESTA [Concomitant]
  20. LEXAPRO [Concomitant]
  21. BUPROPION HCL [Concomitant]
  22. DRYSOL [Concomitant]
  23. CLARINEX [Concomitant]
  24. HYDROQUINONE [Concomitant]
  25. TENORMIN [Concomitant]
  26. AVALIDE [Concomitant]
  27. BUPROPION HCL [Concomitant]
  28. DOXYCYCLINE [Concomitant]
  29. PROMETHAZINE [Concomitant]
  30. CLOTRIMAZOLE [Concomitant]
  31. HYDROQUINONE [Concomitant]
  32. MYTUSSIN [Concomitant]
  33. TRAMADOL HCL [Concomitant]
  34. TRIAMCINOLONE [Concomitant]
  35. NORVASC [Concomitant]

REACTIONS (49)
  - ABDOMINAL PAIN LOWER [None]
  - ACNE [None]
  - ANAEMIA [None]
  - ARTHROPOD BITE [None]
  - BACK PAIN [None]
  - BLOOD TRIGLYCERIDES INCREASED [None]
  - BRONCHITIS [None]
  - CARDIOMEGALY [None]
  - CAROTID BRUIT [None]
  - CARPAL TUNNEL SYNDROME [None]
  - CELLULITIS [None]
  - CHEST PAIN [None]
  - CONSTIPATION [None]
  - CONVULSION [None]
  - DYSPEPSIA [None]
  - ECCHYMOSIS [None]
  - ECONOMIC PROBLEM [None]
  - ECZEMA [None]
  - ELECTROCARDIOGRAM T WAVE ABNORMAL [None]
  - FATIGUE [None]
  - FUNGAL INFECTION [None]
  - GENERAL PHYSICAL HEALTH DETERIORATION [None]
  - GINGIVAL BLEEDING [None]
  - GINGIVAL HYPERTROPHY [None]
  - HAEMATOCHEZIA [None]
  - HERPES SIMPLEX [None]
  - HYPERCHOLESTEROLAEMIA [None]
  - HYPERHIDROSIS [None]
  - INSOMNIA [None]
  - MELANOCYTIC NAEVUS [None]
  - MENORRHAGIA [None]
  - MOOD SWINGS [None]
  - MUSCLE SPASMS [None]
  - MUSCULOSKELETAL PAIN [None]
  - NAUSEA [None]
  - NERVOUSNESS [None]
  - OCULAR ICTERUS [None]
  - OSTEOPENIA [None]
  - PALPITATIONS [None]
  - PERIODONTITIS [None]
  - POLYURIA [None]
  - POOR QUALITY SLEEP [None]
  - RASH [None]
  - RESPIRATORY DISORDER [None]
  - ROAD TRAFFIC ACCIDENT [None]
  - SKIN HYPERPIGMENTATION [None]
  - UTERINE LEIOMYOMA [None]
  - VOMITING [None]
  - WEIGHT INCREASED [None]
